FAERS Safety Report 9291998 (Version 3)
Quarter: 2013Q2

REPORT INFORMATION
  Report Type: Spontaneous
  Country: IT (occurrence: IT)
  Receive Date: 20130516
  Receipt Date: 20130614
  Transmission Date: 20140414
  Serious: Yes (Other)
  Sender: FDA-Public Use
  Company Number: IT-RANBAXY-2013RR-68880

PATIENT
  Age: 11 Year
  Sex: Male

DRUGS (12)
  1. RISPERIDONE [Suspect]
     Indication: PSYCHOTIC DISORDER
     Dosage: UNK
     Route: 048
  2. RISPERIDONE [Suspect]
     Indication: OBSESSIVE-COMPULSIVE DISORDER
  3. RISPERIDONE [Suspect]
     Indication: MILD MENTAL RETARDATION
  4. RISPERIDONE [Suspect]
     Indication: PSYCHOTIC DISORDER
     Dosage: UP TO 0.5 MG
     Route: 048
  5. RISPERIDONE [Suspect]
     Indication: OBSESSIVE-COMPULSIVE DISORDER
  6. RISPERIDONE [Suspect]
     Indication: MILD MENTAL RETARDATION
  7. SERTRALINE [Suspect]
     Indication: PSYCHOTIC DISORDER
     Dosage: SLOW TITRATION UP TO 100 MG
     Route: 065
  8. SERTRALINE [Suspect]
     Indication: OBSESSIVE-COMPULSIVE DISORDER
  9. SERTRALINE [Suspect]
     Indication: MILD MENTAL RETARDATION
  10. VALPROIC ACID [Suspect]
     Indication: PSYCHOTIC DISORDER
     Dosage: UP TO 500 MG
     Route: 065
  11. VALPROIC ACID [Suspect]
     Indication: OBSESSIVE-COMPULSIVE DISORDER
  12. VALPROIC ACID [Suspect]
     Indication: MILD MENTAL RETARDATION

REACTIONS (2)
  - Dyslipidaemia [Recovering/Resolving]
  - Weight increased [Recovering/Resolving]
